FAERS Safety Report 8493234-0 (Version None)
Quarter: 2012Q3

REPORT INFORMATION
  Report Type: 
  Country: None (occurrence: None)
  Receive Date: 20120706
  Receipt Date: 20120629
  Transmission Date: 20120928
  Serious: Yes (Other)
  Sender: FDA-Public Use
  Company Number: PHEH2012US011180

PATIENT
  Sex: Female

DRUGS (8)
  1. GILENYA [Suspect]
     Indication: MULTIPLE SCLEROSIS
     Dosage: 0.5 MG, QD
     Route: 048
     Dates: start: 20111201, end: 20120529
  2. AVONEX [Suspect]
     Dates: start: 19910101, end: 20060101
  3. PREVACID [Concomitant]
  4. METFORMIN HCL [Concomitant]
  5. LANTUS [Concomitant]
  6. VITAMIN D [Concomitant]
  7. NOVOLOG [Concomitant]
  8. HYZAAR [Concomitant]

REACTIONS (7)
  - NON-ALCOHOLIC STEATOHEPATITIS [None]
  - HEPATIC ENZYME INCREASED [None]
  - HEPATIC FIBROSIS [None]
  - IMPAIRED GASTRIC EMPTYING [None]
  - ABDOMINAL PAIN [None]
  - GASTROOESOPHAGEAL REFLUX DISEASE [None]
  - HEPATIC CIRRHOSIS [None]
